FAERS Safety Report 5595377-8 (Version None)
Quarter: 2008Q1

REPORT INFORMATION
  Report Type: 
  Country: None (occurrence: None)
  Receive Date: 20080118
  Receipt Date: 20080114
  Transmission Date: 20080703
  Serious: Yes (Congenital Anomaly, Other)
  Sender: FDA-Public Use
  Company Number: FR-RB-008878-08

PATIENT
  Age: 4 Month

DRUGS (2)
  1. SUBUTEX [Suspect]
     Dosage: DOSAGE AND FREQUENCY UNKNOWN
     Route: 064
     Dates: end: 20070201
  2. BUPRENORPHINE HCL [Suspect]
     Dosage: DOSAGE AND FREQUENCY UNKNOWN
     Route: 064
     Dates: end: 20070501

REACTIONS (3)
  - DRUG EXPOSURE DURING PREGNANCY [None]
  - HYDRONEPHROSIS [None]
  - LYMPHOCELE [None]
